FAERS Safety Report 13051245 (Version 1)
Quarter: 2016Q4

REPORT INFORMATION
  Report Type: Spontaneous
  Country: US (occurrence: US)
  Receive Date: 20161221
  Receipt Date: 20161221
  Transmission Date: 20170207
  Serious: Yes (Life-Threatening)
  Sender: FDA-Public Use
  Company Number: None

PATIENT
  Sex: Female

DRUGS (1)
  1. DEFINITY [Suspect]
     Active Substance: PERFLUTREN
     Indication: ECHOCARDIOGRAM
     Route: 042

REACTIONS (7)
  - Feeling hot [None]
  - Dyspnoea [None]
  - Heart rate increased [None]
  - Immediate post-injection reaction [None]
  - Palpitations [None]
  - Contrast media reaction [None]
  - Flushing [None]

NARRATIVE: CASE EVENT DATE: 20161118
